FAERS Safety Report 14844391 (Version 1)
Quarter: 2018Q2

REPORT INFORMATION
  Report Type: Spontaneous
  Country: US (occurrence: US)
  Receive Date: 20180503
  Receipt Date: 20180503
  Transmission Date: 20180711
  Serious: Yes (Other)
  Sender: FDA-Public Use
  Company Number: US-TEIKOKU PHARMA USA-TPU2018-00275

PATIENT
  Sex: Female
  Weight: 52.21 kg

DRUGS (5)
  1. XANAX [Concomitant]
     Active Substance: ALPRAZOLAM
     Indication: CLAUSTROPHOBIA
  2. SYNTHROID [Concomitant]
     Active Substance: LEVOTHYROXINE SODIUM
  3. AMBIEN [Concomitant]
     Active Substance: ZOLPIDEM TARTRATE
     Indication: SLEEP DISORDER
  4. CELEBREX [Concomitant]
     Active Substance: CELECOXIB
     Indication: DEPRESSION
  5. LIDODERM [Suspect]
     Active Substance: LIDOCAINE
     Indication: POST POLIO SYNDROME
     Dosage: 3 PATCHES AT NIGHT: APPLIES PATCHES TO NECK, SHOULDER BLADES, AND HIP
     Route: 061

REACTIONS (2)
  - Organ transplant [Unknown]
  - Impaired gastric emptying [Unknown]

NARRATIVE: CASE EVENT DATE: 2016
